FAERS Safety Report 8496246-6 (Version None)
Quarter: 2012Q3

REPORT INFORMATION
  Report Type: 
  Country: None (occurrence: None)
  Receive Date: 20120709
  Receipt Date: 20120628
  Transmission Date: 20120928
  Serious: Yes (Other)
  Sender: FDA-Public Use
  Company Number: US-US-EMD SERONO, INC.-7144187

PATIENT
  Sex: Female

DRUGS (2)
  1. EGRIFTA [Suspect]
     Dates: end: 20120614
  2. EGRIFTA [Suspect]
     Indication: LIPODYSTROPHY ACQUIRED
     Dates: start: 20120611

REACTIONS (5)
  - DYSPNOEA [None]
  - ANAPHYLACTIC REACTION [None]
  - CARDIAC DISORDER [None]
  - PALPITATIONS [None]
  - HEADACHE [None]
